FAERS Safety Report 21877841 (Version 3)
Quarter: 2023Q1

REPORT INFORMATION
  Report Type: Spontaneous
  Country: ES (occurrence: ES)
  Receive Date: 20230118
  Receipt Date: 20230220
  Transmission Date: 20230418
  Serious: No
  Sender: FDA-Public Use
  Company Number: ES-SA-2023SA013668

PATIENT

DRUGS (1)
  1. ENOXAPARIN SODIUM [Suspect]
     Active Substance: ENOXAPARIN SODIUM
     Dosage: UNK

REACTIONS (4)
  - Injury associated with device [Unknown]
  - Device malfunction [Unknown]
  - Device malfunction [Unknown]
  - Injection site pain [Unknown]
